FAERS Safety Report 9441472 (Version 1)
Quarter: 2013Q3

REPORT INFORMATION
  Report Type: Spontaneous
  Country: US (occurrence: US)
  Receive Date: 20130805
  Receipt Date: 20130805
  Transmission Date: 20140515
  Serious: No
  Sender: FDA-Public Use
  Company Number: US-009507513-1211USA007265

PATIENT
  Age: 28 Year
  Sex: Female

DRUGS (5)
  1. FUROSEMIDE [Suspect]
     Indication: OEDEMA PERIPHERAL
     Dosage: 20 MG, QD
  2. FUROSEMIDE [Suspect]
     Indication: DYSPNOEA
  3. VITAMINS (UNSPECIFIED) [Concomitant]
  4. AMPICILLIN [Concomitant]
     Dosage: 2 G, UNK
     Route: 042
  5. FUROSEMIDE [Concomitant]
     Route: 042

REACTIONS (1)
  - Exposure during pregnancy [Unknown]
